FAERS Safety Report 23272127 (Version 1)
Quarter: 2023Q4

REPORT INFORMATION
  Report Type: Spontaneous
  Country: EU (occurrence: EU)
  Receive Date: 20231207
  Receipt Date: 20231207
  Transmission Date: 20240110
  Serious: Yes (Life-Threatening)
  Sender: FDA-Public Use
  Company Number: None

PATIENT

DRUGS (2)
  1. ARTICAINE [Suspect]
     Active Substance: ARTICAINE
     Indication: Local anaesthesia
     Dosage: 0,40ML ( CA 1/5 AV EN 1,7ML AMPULL)
     Route: 050
     Dates: start: 20231121
  2. EPINEPHRINE\LIDOCAINE [Suspect]
     Active Substance: EPINEPHRINE\LIDOCAINE
     Indication: Local anaesthesia
     Dosage: 1,8ML
     Dates: start: 20231121

REACTIONS (6)
  - Presyncope [Recovered/Resolved]
  - Gaze palsy [Recovered/Resolved]
  - Seizure [Recovered/Resolved]
  - Toxicity to various agents [Recovered/Resolved]
  - Nausea [Recovered/Resolved]
  - Pallor [Recovered/Resolved]

NARRATIVE: CASE EVENT DATE: 20231121
